FAERS Safety Report 10079220 (Version 1)
Quarter: 2014Q2

REPORT INFORMATION
  Report Type: Spontaneous
  Country: US (occurrence: None)
  Receive Date: 20140414
  Receipt Date: 20140414
  Transmission Date: 20141212
  Serious: Yes (Death)
  Sender: FDA-Public Use
  Company Number: None

PATIENT
  Age: 67 Year
  Sex: Male
  Weight: 163 kg

DRUGS (25)
  1. HEPARIN [Suspect]
     Indication: ANTICOAGULANT THERAPY
     Dosage: 15,000 UNITS PRE-TX
     Dates: start: 20140125
  2. HEPARIN [Suspect]
     Indication: DIALYSIS
     Dosage: 15,000 UNITS PRE-TX
     Dates: start: 20140125
  3. HECTOROL [Concomitant]
  4. VENOFER [Concomitant]
  5. ZONE PERFECT PROTEIN BAR [Concomitant]
  6. OPTIFLUX [Concomitant]
  7. POTASSIUM [Concomitant]
  8. CALCIUM [Concomitant]
  9. DEXTROSE [Concomitant]
  10. ALBUTEROL [Concomitant]
  11. ALLOPURINOL [Concomitant]
  12. ASPIRIN [Concomitant]
  13. CALCIUM ACETATE [Concomitant]
  14. ARANESP [Concomitant]
  15. ERGOCALCIFEROL [Concomitant]
  16. VITAMIN D2 [Concomitant]
  17. INSULIN [Concomitant]
  18. LORTAB [Concomitant]
  19. NEPHROCAP [Concomitant]
  20. SODIUM BICARBONATE [Concomitant]
  21. PAXIL [Concomitant]
  22. TRAZODONE [Concomitant]
  23. VERAPAMIL [Concomitant]
  24. COMBISET EXTRACORPOREAL CIRCUIT [Concomitant]
  25. FRESENIUS T MACHINE [Concomitant]

REACTIONS (4)
  - Asthenia [None]
  - Fall [None]
  - Unresponsive to stimuli [None]
  - Subdural haematoma [None]
